FAERS Safety Report 9761898 (Version 1)
Quarter: 2013Q4

REPORT INFORMATION
  Report Type: Spontaneous
  Country: US (occurrence: US)
  Receive Date: 20131216
  Receipt Date: 20131216
  Transmission Date: 20140711
  Serious: No
  Sender: FDA-Public Use
  Company Number: US-BIOGENIDEC-2013BI104050

PATIENT
  Sex: Female

DRUGS (14)
  1. TECFIDERA [Suspect]
     Indication: PRODUCT USED FOR UNKNOWN INDICATION
     Route: 048
     Dates: start: 20130625, end: 20130702
  2. TECFIDERA [Suspect]
     Indication: PRODUCT USED FOR UNKNOWN INDICATION
     Route: 048
     Dates: start: 20130703
  3. KLONOPIN [Concomitant]
  4. PEPCID [Concomitant]
  5. HIPREX [Concomitant]
  6. NEURONTIN [Concomitant]
  7. ISONIAZID [Concomitant]
  8. PROPANOLOL [Concomitant]
  9. AMITRIPTYLINE [Concomitant]
  10. VITAMIN C [Concomitant]
  11. VITAMIN D [Concomitant]
  12. DITROPAN XL [Concomitant]
  13. METHOTREXATE [Concomitant]
  14. CIPRO [Concomitant]

REACTIONS (1)
  - Flushing [Unknown]
